FAERS Safety Report 18582843 (Version 2)
Quarter: 2021Q1

REPORT INFORMATION
  Report Type: Spontaneous
  Country: GB (occurrence: GB)
  Receive Date: 20201205
  Receipt Date: 20210107
  Transmission Date: 20210419
  Serious: Yes (Other)
  Sender: FDA-Public Use
  Company Number: GB-JNJFOC-20201153062

PATIENT
  Age: 77 Year
  Sex: Male
  Weight: 86 kg

DRUGS (5)
  1. XARELTO [Suspect]
     Active Substance: RIVAROXABAN
     Indication: ATRIAL FIBRILLATION
     Dosage: 15 MG, QD
     Route: 048
     Dates: start: 201910
  2. LINAGLIPTIN [Concomitant]
     Active Substance: LINAGLIPTIN
  3. CALCICHEW [Concomitant]
     Active Substance: CALCIUM CARBONATE
  4. FUROSEMIDE. [Concomitant]
     Active Substance: FUROSEMIDE
  5. BISOPROLOL [Concomitant]
     Active Substance: BISOPROLOL

REACTIONS (2)
  - Renal impairment [Not Recovered/Not Resolved]
  - End stage renal disease [Not Recovered/Not Resolved]
